FAERS Safety Report 6610975 (Version 3)
Quarter: 2018Q4

REPORT INFORMATION
  Report Type: Spontaneous
  Country: JP (occurrence: JP)
  Receive Date: 20080410
  Receipt Date: 20181226
  Transmission Date: 20190205
  Serious: Yes (Death, Hospitalization, Other)
  Sender: FDA-Public Use
  Company Number: PHBS2007JP17395

PATIENT
  Age: 69 Year
  Sex: Female
  Weight: 54 kg

DRUGS (11)
  1. GLIVEC [Suspect]
     Active Substance: IMATINIB MESYLATE
     Dosage: 400 MG, QD
     Route: 048
     Dates: start: 20070425, end: 20070501
  2. PREDONINE [Concomitant]
     Active Substance: PREDNISOLONE
     Dosage: 60 MG, QD
     Route: 048
     Dates: start: 20070615
  3. GLIVEC [Suspect]
     Active Substance: IMATINIB MESYLATE
     Dosage: 400 MG, QD
     Route: 048
     Dates: start: 20070326, end: 20070331
  4. GLIVEC [Suspect]
     Active Substance: IMATINIB MESYLATE
     Dosage: 400 MG, QD
     Route: 048
     Dates: start: 20070119, end: 20070208
  5. GLIVEC [Suspect]
     Active Substance: IMATINIB MESYLATE
     Indication: ACUTE LYMPHOCYTIC LEUKAEMIA
     Dosage: 400 MG, QD
     Route: 048
     Dates: start: 20040422, end: 20040521
  6. GLIVEC [Suspect]
     Active Substance: IMATINIB MESYLATE
     Dosage: 400 MG, QD
     Route: 048
     Dates: start: 20070822, end: 20070826
  7. GLIVEC [Suspect]
     Active Substance: IMATINIB MESYLATE
     Dosage: 400 MG, QD
     Route: 048
     Dates: start: 20070711, end: 20070715
  8. PREDONINE [Concomitant]
     Active Substance: PREDNISOLONE
     Indication: ACUTE LYMPHOCYTIC LEUKAEMIA
     Dosage: 60 MG, QD
     Route: 065
     Dates: start: 20070119, end: 20070208
  9. GLIVEC [Suspect]
     Active Substance: IMATINIB MESYLATE
     Dosage: 400 MG, QD
     Route: 048
     Dates: start: 20070602, end: 20070606
  10. PREDONINE [Concomitant]
     Active Substance: PREDNISOLONE
     Dosage: 60 MG, QD
     Route: 048
     Dates: start: 20070326, end: 20070331
  11. GLIVEC [Suspect]
     Active Substance: IMATINIB MESYLATE
     Dosage: 200 MG, QD
     Route: 048
     Dates: start: 20070906, end: 20071003

REACTIONS (18)
  - Neoplasm [Fatal]
  - Lymphadenopathy [Fatal]
  - Aspartate aminotransferase increased [Fatal]
  - Leukaemic infiltration extramedullary [Fatal]
  - Multiple organ dysfunction syndrome [Fatal]
  - Dyspnoea [Fatal]
  - Platelet count decreased [Fatal]
  - Pyrexia [Unknown]
  - Bone marrow failure [Fatal]
  - Nausea [Unknown]
  - Abdominal distension [Fatal]
  - Alanine aminotransferase increased [Fatal]
  - Cytogenetic abnormality [Unknown]
  - Malaise [Unknown]
  - Acute lymphocytic leukaemia recurrent [Fatal]
  - Metabolic acidosis [Fatal]
  - Generalised oedema [Fatal]
  - Oxygen saturation decreased [Fatal]

NARRATIVE: CASE EVENT DATE: 20070115
